FAERS Safety Report 5068356-7 (Version None)
Quarter: 2006Q3

REPORT INFORMATION
  Report Type: 
  Country: None (occurrence: None)
  Receive Date: 20060802
  Receipt Date: 20050816
  Transmission Date: 20061208
  Serious: No
  Sender: FDA-Public Use
  Company Number: US-BRISTOL-MYERS SQUIBB COMPANY-13079520

PATIENT
  Age: 52 Year
  Sex: Male
  Weight: 86 kg

DRUGS (11)
  1. COUMADIN [Suspect]
     Indication: MITRAL VALVE REPLACEMENT
     Dates: start: 20050601
  2. LASIX [Concomitant]
     Dates: start: 20050701
  3. POTASSIUM [Concomitant]
     Dates: start: 20050701
  4. PLAVIX [Concomitant]
     Dates: start: 20050701
  5. ASPIRIN [Concomitant]
  6. ONE-A-DAY [Concomitant]
  7. ZETIA [Concomitant]
  8. ZOCOR [Concomitant]
  9. ELAVIL [Concomitant]
  10. BENADRYL [Concomitant]
  11. PHENOBARBITAL TAB [Concomitant]

REACTIONS (1)
  - INTERNATIONAL NORMALISED RATIO DECREASED [None]
